FAERS Safety Report 6070803-9 (Version None)
Quarter: 2009Q1

REPORT INFORMATION
  Report Type: 
  Country: None (occurrence: None)
  Receive Date: 20090209
  Receipt Date: 20080815
  Transmission Date: 20090719
  Serious: No
  Sender: FDA-Public Use
  Company Number: A0737531A

PATIENT
  Sex: Female

DRUGS (1)
  1. PAXIL [Suspect]
     Indication: DRUG USE FOR UNKNOWN INDICATION
     Route: 048
     Dates: start: 20010101, end: 20060101

REACTIONS (3)
  - DIARRHOEA [None]
  - DRUG WITHDRAWAL SYNDROME [None]
  - FAECAL INCONTINENCE [None]
